FAERS Safety Report 25765624 (Version 1)
Quarter: 2025Q3

REPORT INFORMATION
  Report Type: Spontaneous
  Country: GB (occurrence: GB)
  Receive Date: 20250905
  Receipt Date: 20250905
  Transmission Date: 20251021
  Serious: Yes (Other)
  Sender: DR REDDYS
  Company Number: None

PATIENT
  Age: 47 Year
  Sex: Female
  Weight: 93 kg

DRUGS (12)
  1. CLARITHROMYCIN [Suspect]
     Active Substance: CLARITHROMYCIN
     Indication: Ill-defined disorder
     Dates: start: 20250821
  2. METHOCARBAMOL [Concomitant]
     Active Substance: METHOCARBAMOL
     Indication: Ill-defined disorder
     Dosage: TAKE TWO 4 TIMES/DAY
     Dates: start: 20250529, end: 20250621
  3. DICLOFENAC DIETHYLAMINE [Concomitant]
     Active Substance: DICLOFENAC DIETHYLAMINE
     Indication: Ill-defined disorder
     Dosage: APPLY TWICE DAILY
     Dates: start: 20250703, end: 20250731
  4. PIROXICAM [Concomitant]
     Active Substance: PIROXICAM
     Indication: Ill-defined disorder
     Dates: start: 20250711, end: 20250725
  5. CETIRIZINE [Concomitant]
     Active Substance: CETIRIZINE HYDROCHLORIDE
     Indication: Ill-defined disorder
     Dosage: TAKE ONE DAILY- CAN TAKE TWICE A DAY FOR ACUTE ...
     Dates: start: 20250811
  6. DEXAMETHASONE SODIUM PHOSPHATE [Concomitant]
     Active Substance: DEXAMETHASONE SODIUM PHOSPHATE
     Indication: Ill-defined disorder
     Dosage: PUT ONE DROP TO THE RIGHT EYE FOUR TIMES A DAY ...
     Dates: start: 20220316
  7. XAILIN NIGHT [Concomitant]
     Indication: Ill-defined disorder
     Dates: start: 20220316
  8. EASYHALER [Concomitant]
     Indication: Ill-defined disorder
     Route: 055
     Dates: start: 20231218
  9. FAMOTIDINE [Concomitant]
     Active Substance: FAMOTIDINE
     Indication: Ill-defined disorder
     Dosage: TAKE ONE TWICE DAILY
     Dates: start: 20231218, end: 20250529
  10. HYALURONATE SODIUM [Concomitant]
     Active Substance: HYALURONATE SODIUM
     Indication: Ill-defined disorder
     Dates: start: 20240805
  11. OLOPATADINE [Concomitant]
     Active Substance: OLOPATADINE
     Indication: Ill-defined disorder
     Dosage: ONE DROP TWO TIMES A DAY FOR 4 MONTHS
     Dates: start: 20241006
  12. BECLOMETHASONE DIPROPIONATE [Concomitant]
     Active Substance: BECLOMETHASONE DIPROPIONATE
     Indication: Ill-defined disorder
     Dosage: INHALE 1 DOSE TWICE DAILY
     Route: 055
     Dates: start: 20250529

REACTIONS (4)
  - Mouth ulceration [Recovering/Resolving]
  - Mania [Recovering/Resolving]
  - Depression [Recovering/Resolving]
  - Diarrhoea [Recovering/Resolving]
